FAERS Safety Report 7481635-9 (Version None)
Quarter: 2011Q2

REPORT INFORMATION
  Report Type: 
  Country: None (occurrence: None)
  Receive Date: 20110516
  Receipt Date: 20110506
  Transmission Date: 20111010
  Serious: Yes (Other)
  Sender: FDA-Public Use
  Company Number: US-ROCHE-776147

PATIENT
  Sex: Female

DRUGS (3)
  1. AVASTIN [Suspect]
     Dosage: FREQUENCY: EVERY 2 WEEK.
     Route: 042
     Dates: start: 20110324
  2. DOXIL [Concomitant]
     Dosage: SHE RECEIVED SIX TREATMENT OF AVASTIN AND DOXIL ON 21 DAY CYCLE
     Dates: start: 20100901
  3. AVASTIN [Suspect]
     Indication: OVARIAN CANCER
     Dosage: SHE RECEIVED SIX TREATMENT OF AVASTIN AND DOXIL ON 21 DAY CYCLE
     Route: 042
     Dates: start: 20100901

REACTIONS (3)
  - NEOPLASM MALIGNANT [None]
  - BLOOD CREATININE INCREASED [None]
  - BLOOD UREA INCREASED [None]
